FAERS Safety Report 9505424 (Version 1)
Quarter: 2013Q1

REPORT INFORMATION
  Report Type: Spontaneous
  Country: US (occurrence: None)
  Receive Date: 20130220
  Receipt Date: 20130220
  Transmission Date: 20140127
  Serious: No
  Sender: FDA-Public Use
  Company Number: 1000040274

PATIENT
  Age: 45 Year
  Sex: Female

DRUGS (2)
  1. VIIBRYD (VILAZODONE HYDROCHLORIDE) [Suspect]
     Indication: DEPRESSION
     Dates: start: 201210, end: 20121104
  2. AMITRIPTYLINE (AMTRIPTYLINE) (AMITRIPTYLINE) [Concomitant]

REACTIONS (1)
  - Tachycardia [None]
